FAERS Safety Report 14519228 (Version 1)
Quarter: 2018Q1

REPORT INFORMATION
  Report Type: Spontaneous
  Country: US (occurrence: US)
  Receive Date: 20180209
  Receipt Date: 20180209
  Transmission Date: 20180509
  Serious: Yes (Other)
  Sender: FDA-Public Use
  Company Number: None

PATIENT
  Age: 58 Year
  Sex: Female
  Weight: 107.9 kg

DRUGS (1)
  1. LOVENOX [Suspect]
     Active Substance: ENOXAPARIN SODIUM
     Indication: FACTOR V LEIDEN CARRIER
     Route: 058
     Dates: start: 20171225, end: 20180109

REACTIONS (4)
  - Infusion site erythema [None]
  - Injection site bruising [None]
  - Injection site warmth [None]
  - Injection site cellulitis [None]

NARRATIVE: CASE EVENT DATE: 20180109
